FAERS Safety Report 12679462 (Version 2)
Quarter: 2016Q4

REPORT INFORMATION
  Report Type: Spontaneous
  Country: US (occurrence: US)
  Receive Date: 20160824
  Receipt Date: 20161007
  Transmission Date: 20170207
  Serious: Yes (Hospitalization, Other)
  Sender: FDA-Public Use
  Company Number: US-ASTRAZENECA-2016SE88930

PATIENT
  Sex: Male
  Weight: 70.3 kg

DRUGS (2)
  1. INJECTIVEFER IRON SUPPLEMENT [Concomitant]
     Indication: ANAEMIA
     Route: 041
  2. SYMBICORT [Suspect]
     Active Substance: BUDESONIDE\FORMOTEROL FUMARATE DIHYDRATE
     Indication: ASTHMA
     Dosage: 160/4.5 MCG, 2 PUFFS 2 TIMES PER DAY
     Route: 055
     Dates: start: 2013

REACTIONS (6)
  - Drug dose omission [Unknown]
  - Haemorrhagic anaemia [Unknown]
  - Device issue [Unknown]
  - Gastrointestinal haemorrhage [Unknown]
  - Anaemia [Unknown]
  - Anastomotic ulcer haemorrhage [Unknown]
